FAERS Safety Report 25451104 (Version 1)
Quarter: 2025Q2

REPORT INFORMATION
  Report Type: Spontaneous
  Country: US (occurrence: US)
  Receive Date: 20250618
  Receipt Date: 20250618
  Transmission Date: 20250716
  Serious: No
  Sender: INTERCEPT PHARMACEUTICALS
  Company Number: US-INTERCEPT-PM2025000417

PATIENT
  Sex: Female

DRUGS (6)
  1. OCALIVA [Suspect]
     Active Substance: OBETICHOLIC ACID
     Indication: Primary biliary cholangitis
     Dosage: 5 MILLIGRAM, QD
     Route: 048
     Dates: start: 2016
  2. OCALIVA [Suspect]
     Active Substance: OBETICHOLIC ACID
     Indication: Product use in unapproved indication
     Dosage: 5 MILLIGRAM, QOD
     Route: 048
     Dates: start: 20190321, end: 201903
  3. OCALIVA [Suspect]
     Active Substance: OBETICHOLIC ACID
     Dosage: 5 MILLIGRAM, QD
     Route: 048
     Dates: start: 201903
  4. LISINOPRIL [Concomitant]
     Active Substance: LISINOPRIL
  5. FLUCONAZOLE [Concomitant]
     Active Substance: FLUCONAZOLE
  6. TRIAMCINOLONE ACETONIDE [Concomitant]
     Active Substance: TRIAMCINOLONE ACETONIDE

REACTIONS (2)
  - Pruritus [Not Recovered/Not Resolved]
  - Inability to afford medication [Not Recovered/Not Resolved]
